FAERS Safety Report 12603576 (Version 3)
Quarter: 2016Q3

REPORT INFORMATION
  Report Type: Spontaneous
  Country: US (occurrence: US)
  Receive Date: 20160728
  Receipt Date: 20160819
  Transmission Date: 20161109
  Serious: Yes (Hospitalization)
  Sender: FDA-Public Use
  Company Number: US-BAYER-2016-146192

PATIENT
  Age: 22 Year
  Sex: Male
  Weight: 90.7 kg

DRUGS (4)
  1. COPPERTONE SPORT CONTINUOUS SPRAY SPF 70 [Suspect]
     Active Substance: OCTINOXATE\OCTOCRYLENE
     Indication: PROPHYLAXIS AGAINST SOLAR RADIATION
     Dosage: 1 DOSE, Q2HR
     Route: 061
     Dates: start: 201606, end: 201606
  2. ADVIL [Concomitant]
     Active Substance: IBUPROFEN
     Route: 048
  3. SILVADENE [Concomitant]
     Active Substance: SILVER SULFADIAZINE
     Dosage: UNK UNK, QD
  4. LOTRIMIN [Concomitant]
     Active Substance: CLOTRIMAZOLE
     Dosage: UNK UNK, BID DAILY

REACTIONS (3)
  - Sunburn [Recovered/Resolved]
  - Pain [Recovered/Resolved]
  - Drug ineffective [None]

NARRATIVE: CASE EVENT DATE: 2016
